FAERS Safety Report 24540538 (Version 1)
Quarter: 2024Q4

REPORT INFORMATION
  Report Type: Spontaneous
  Country: US (occurrence: US)
  Receive Date: 20241023
  Receipt Date: 20241023
  Transmission Date: 20250115
  Serious: Yes (Other)
  Sender: ANI
  Company Number: US-ANIPHARMA-2024-US-056591

PATIENT
  Sex: Male

DRUGS (3)
  1. BICALUTAMIDE [Suspect]
     Active Substance: BICALUTAMIDE
     Indication: Prostate cancer
  2. FINASTERIDE [Suspect]
     Active Substance: FINASTERIDE
  3. VYNDAMAX [Concomitant]
     Active Substance: TAFAMIDIS
     Dosage: 61MG BY MOUTH DAILY

REACTIONS (1)
  - Prostate cancer recurrent [Unknown]
